FAERS Safety Report 8553544-5 (Version None)
Quarter: 2012Q3

REPORT INFORMATION
  Report Type: 
  Country: None (occurrence: None)
  Receive Date: 20120731
  Receipt Date: 20120725
  Transmission Date: 20120928
  Serious: Yes (Other)
  Sender: FDA-Public Use
  Company Number: US-TEVA-350523USA

PATIENT
  Sex: Male
  Weight: 77.18 kg

DRUGS (2)
  1. CIALIS [Concomitant]
     Indication: ERECTILE DYSFUNCTION
     Dosage: PRN
     Route: 048
  2. COPAXONE [Suspect]
     Indication: MULTIPLE SCLEROSIS
     Route: 058
     Dates: start: 20110628

REACTIONS (6)
  - INJECTION SITE PRURITUS [None]
  - INJECTION SITE SWELLING [None]
  - THROAT TIGHTNESS [None]
  - INJECTION SITE ERYTHEMA [None]
  - NECK PAIN [None]
  - OROPHARYNGEAL PAIN [None]
